FAERS Safety Report 4339094-0 (Version None)
Quarter: 2004Q1

REPORT INFORMATION
  Report Type: 
  Country: None (occurrence: None)
  Receive Date: 20040329
  Receipt Date: 20040203
  Transmission Date: 20041129
  Serious: No
  Sender: FDA-Public Use
  Company Number: USA040258348

PATIENT
  Age: 12 Year
  Sex: Male
  Weight: 36 kg

DRUGS (3)
  1. STRATTERA [Suspect]
     Indication: ATTENTION DEFICIT/HYPERACTIVITY DISORDER
     Dosage: 40 MG/1 IN THE EVENING
     Dates: start: 20040101
  2. ALLEGRA [Concomitant]
  3. IMIPRAMINE [Concomitant]

REACTIONS (4)
  - ABDOMINAL PAIN UPPER [None]
  - INITIAL INSOMNIA [None]
  - NAUSEA [None]
  - SOMNOLENCE [None]
